FAERS Safety Report 13904418 (Version 1)
Quarter: 2017Q3

REPORT INFORMATION
  Report Type: Spontaneous
  Country: US (occurrence: None)
  Receive Date: 20170824
  Receipt Date: 20170824
  Transmission Date: 20171127
  Serious: Yes (Death, Hospitalization)
  Sender: FDA-Public Use
  Company Number: None

PATIENT
  Age: 7 Year
  Sex: Female
  Weight: 7.9 kg

DRUGS (8)
  1. VINCRISTINE SULFATE. [Suspect]
     Active Substance: VINCRISTINE SULFATE
     Dates: end: 20091110
  2. CISPLATIN. [Suspect]
     Active Substance: CISPLATIN
     Dates: end: 20091019
  3. CARBOPLATIN. [Suspect]
     Active Substance: CARBOPLATIN
     Dates: end: 20100103
  4. CYCLOPHOSPHAMIDE. [Suspect]
     Active Substance: CYCLOPHOSPHAMIDE
     Dates: end: 20091018
  5. THIOTEPA. [Suspect]
     Active Substance: THIOTEPA
     Dates: end: 20100103
  6. G-CSF (FILGRASTIM, AMGEN) [Suspect]
     Active Substance: FILGRASTIM
     Dates: end: 20091101
  7. MESNA. [Suspect]
     Active Substance: MESNA
     Dates: end: 20091018
  8. ETOPOSIDE (VP-16) [Suspect]
     Active Substance: ETOPOSIDE
     Dates: end: 20091019

REACTIONS (3)
  - Stem cell transplant [None]
  - Medulloblastoma recurrent [None]
  - Osteosarcoma [None]

NARRATIVE: CASE EVENT DATE: 20160330
